FAERS Safety Report 8489548-0 (Version None)
Quarter: 2012Q3

REPORT INFORMATION
  Report Type: 
  Country: None (occurrence: None)
  Receive Date: 20120705
  Receipt Date: 20120627
  Transmission Date: 20120928
  Serious: Yes (Hospitalization)
  Sender: FDA-Public Use
  Company Number: US-JNJFOC-20120700304

PATIENT
  Sex: Female
  Weight: 47.54 kg

DRUGS (4)
  1. HUMIRA [Concomitant]
     Dates: start: 20120612
  2. HUMIRA [Concomitant]
     Dates: start: 20120611
  3. INFLIXIMAB, RECOMBINANT [Suspect]
     Indication: CROHN'S DISEASE
     Route: 042
     Dates: start: 20080115, end: 20080908
  4. HUMIRA [Concomitant]
     Indication: CROHN'S DISEASE
     Dates: start: 20081103, end: 20090119

REACTIONS (1)
  - CROHN'S DISEASE [None]
